FAERS Safety Report 4335330-5 (Version None)
Quarter: 2004Q2

REPORT INFORMATION
  Report Type: 
  Country: None (occurrence: None)
  Receive Date: 20040408
  Receipt Date: 20040408
  Transmission Date: 20050107
  Serious: Yes (Other)
  Sender: FDA-Public Use
  Company Number: None

PATIENT
  Sex: Female
  Weight: 48.0813 kg

DRUGS (1)
  1. ETHINYL ESTRADIOL AND NORETHINDRONE [Suspect]
     Dosage: ONE PO Q DAY
     Route: 048

REACTIONS (4)
  - ABDOMINAL PAIN [None]
  - ARTHRALGIA [None]
  - MUSCLE CRAMP [None]
  - MYALGIA [None]
